FAERS Safety Report 15233378 (Version 1)
Quarter: 2018Q3

REPORT INFORMATION
  Report Type: Report from Study
  Country: US (occurrence: US)
  Receive Date: 20180802
  Receipt Date: 20180802
  Transmission Date: 20181010
  Serious: Yes (Death, Other)
  Sender: FDA-Public Use
  Company Number: US-MYLANLABS-2018M1059754

PATIENT
  Age: 0 Year
  Sex: Male

DRUGS (2)
  1. CLOZAPINE. [Suspect]
     Active Substance: CLOZAPINE
     Indication: DEMENTIA
     Dosage: 1 DF, QD
     Dates: start: 20170519, end: 20180702
  2. CLOZAPINE. [Suspect]
     Active Substance: CLOZAPINE
     Indication: ABNORMAL BEHAVIOUR

REACTIONS (6)
  - Product use in unapproved indication [Recovered/Resolved]
  - Neurodegenerative disorder [Unknown]
  - Aspiration [Unknown]
  - Disease progression [Unknown]
  - Respiratory disorder [Unknown]
  - Death [Fatal]

NARRATIVE: CASE EVENT DATE: 20170519
